FAERS Safety Report 16530241 (Version 1)
Quarter: 2019Q3

REPORT INFORMATION
  Report Type: Report from Study
  Country: US (occurrence: US)
  Receive Date: 20190704
  Receipt Date: 20190704
  Transmission Date: 20191004
  Serious: Yes (Hospitalization, Other)
  Sender: FDA-Public Use
  Company Number: US-BRISTOL-MYERS SQUIBB COMPANY-BMS-2019-063859

PATIENT
  Age: 68 Year
  Sex: Female

DRUGS (1)
  1. NIVOLUMAB [Suspect]
     Active Substance: NIVOLUMAB
     Indication: ACUTE MYELOID LEUKAEMIA
     Dosage: 1 DOSAGE FORM
     Route: 042
     Dates: start: 20190423

REACTIONS (2)
  - Pneumonitis [Recovering/Resolving]
  - Metapneumovirus infection [Recovering/Resolving]

NARRATIVE: CASE EVENT DATE: 20190617
